FAERS Safety Report 4721026-4 (Version None)
Quarter: 2005Q3

REPORT INFORMATION
  Report Type: 
  Country: None (occurrence: None)
  Receive Date: 20050719
  Receipt Date: 20041029
  Transmission Date: 20060218
  Serious: Yes (Other)
  Sender: FDA-Public Use
  Company Number: 2004241810US

PATIENT

DRUGS (1)
  1. CELEBREX [Suspect]

REACTIONS (1)
  - ANGIONEUROTIC OEDEMA [None]
